FAERS Safety Report 7916736-1 (Version None)
Quarter: 2011Q4

REPORT INFORMATION
  Report Type: 
  Country: None (occurrence: None)
  Receive Date: 20111114
  Receipt Date: 20111103
  Transmission Date: 20120403
  Serious: Yes (Hospitalization, Other)
  Sender: FDA-Public Use
  Company Number: 2011SP030601

PATIENT
  Age: 35 Year
  Sex: Female
  Weight: 79.3795 kg

DRUGS (1)
  1. NUVARING [Suspect]
     Indication: OVARIAN CYST
     Dates: start: 20080501, end: 20080621

REACTIONS (6)
  - PULMONARY EMBOLISM [None]
  - CEREBROVASCULAR ACCIDENT [None]
  - EMOTIONAL DISORDER [None]
  - DEEP VEIN THROMBOSIS [None]
  - MENTAL DISORDER [None]
  - COAGULOPATHY [None]
